FAERS Safety Report 10411470 (Version 2)
Quarter: 2014Q4

REPORT INFORMATION
  Report Type: Spontaneous
  Country: US (occurrence: US)
  Receive Date: 20140827
  Receipt Date: 20141010
  Transmission Date: 20150528
  Serious: Yes (Hospitalization)
  Sender: FDA-Public Use
  Company Number: US-ROCHE-1451343

PATIENT
  Sex: Female

DRUGS (4)
  1. KLONOPIN [Suspect]
     Active Substance: CLONAZEPAM
     Indication: PRODUCT USED FOR UNKNOWN INDICATION
     Route: 065
  2. LORAZEPAM. [Concomitant]
     Active Substance: LORAZEPAM
  3. VALIUM [Suspect]
     Active Substance: DIAZEPAM
     Indication: PRODUCT USED FOR UNKNOWN INDICATION
     Route: 048
  4. CLONAZEPAM. [Suspect]
     Active Substance: CLONAZEPAM
     Indication: STRESS
     Route: 048

REACTIONS (13)
  - Musculoskeletal stiffness [Unknown]
  - Paradoxical drug reaction [Unknown]
  - Nervousness [Unknown]
  - Malaise [Unknown]
  - Throat tightness [Unknown]
  - Lip swelling [Unknown]
  - Dyspnoea [Unknown]
  - Palpitations [Unknown]
  - Amnesia [Unknown]
  - Dysphagia [Unknown]
  - Tremor [Recovered/Resolved]
  - Dyspepsia [Unknown]
  - Drug hypersensitivity [Unknown]
